FAERS Safety Report 5533770-X (Version None)
Quarter: 2007Q4

REPORT INFORMATION
  Report Type: 
  Country: None (occurrence: None)
  Receive Date: 20071129
  Receipt Date: 20071116
  Transmission Date: 20080405
  Serious: Yes (Other)
  Sender: FDA-Public Use
  Company Number: DSJ-2007-08876

PATIENT
  Age: 83 Year
  Sex: Female

DRUGS (1)
  1. OLMESARTAN MEDOXOMIL [Suspect]
     Dosage: 20 MG
     Dates: start: 20060101, end: 20060401

REACTIONS (1)
  - LIVER DISORDER [None]
